FAERS Safety Report 25248657 (Version 1)
Quarter: 2025Q2

REPORT INFORMATION
  Report Type: Spontaneous
  Country: US (occurrence: US)
  Receive Date: 20250429
  Receipt Date: 20250429
  Transmission Date: 20250717
  Serious: Yes (Hospitalization)
  Sender: INTRA-CELLULAR THERAPIES
  Company Number: US-INTRA-CELLULAR THERAPIES, INC.-2025ICT00651

PATIENT
  Age: 6 Decade
  Sex: Male

DRUGS (2)
  1. CAPLYTA [Suspect]
     Active Substance: LUMATEPERONE
     Indication: Bipolar disorder
     Dates: start: 202503, end: 202503
  2. CAPLYTA [Suspect]
     Active Substance: LUMATEPERONE
     Indication: Bipolar disorder
     Dates: start: 202503, end: 202503

REACTIONS (3)
  - Abnormal behaviour [Unknown]
  - Agitation [Unknown]
  - Tremor [Unknown]

NARRATIVE: CASE EVENT DATE: 20250301
